FAERS Safety Report 24392903 (Version 2)
Quarter: 2024Q4

REPORT INFORMATION
  Report Type: Spontaneous
  Country: FR (occurrence: FR)
  Receive Date: 20241003
  Receipt Date: 20241004
  Transmission Date: 20250114
  Serious: Yes (Other)
  Sender: NOVARTIS
  Company Number: FR-002147023-NVSC2024FR193930

PATIENT
  Age: 81 Year
  Sex: Female
  Weight: 75 kg

DRUGS (2)
  1. FEMARA [Suspect]
     Active Substance: LETROZOLE
     Indication: Breast cancer
     Dosage: 2.5 MG, QD (THREE YEARS)
     Route: 065
     Dates: start: 2021
  2. IRBESARTAN [Concomitant]
     Active Substance: IRBESARTAN
     Indication: Blood pressure increased
     Dosage: 75 MG
     Route: 065

REACTIONS (1)
  - Diabetes mellitus [Unknown]
